FAERS Safety Report 14499122 (Version 1)
Quarter: 2018Q1

REPORT INFORMATION
  Report Type: Spontaneous
  Country: FR (occurrence: FR)
  Receive Date: 20180207
  Receipt Date: 20180207
  Transmission Date: 20180509
  Serious: Yes (Other)
  Sender: FDA-Public Use
  Company Number: FR-JAZZ-2017-FR-011399

PATIENT
  Age: 34 Year
  Sex: Male

DRUGS (6)
  1. CYMBALTA [Concomitant]
     Active Substance: DULOXETINE HYDROCHLORIDE
     Indication: PRODUCT USED FOR UNKNOWN INDICATION
  2. DITROPAN [Concomitant]
     Active Substance: OXYBUTYNIN CHLORIDE
     Indication: PRODUCT USED FOR UNKNOWN INDICATION
  3. PRIALT [Suspect]
     Active Substance: ZICONOTIDE ACETATE
     Indication: NEURALGIA
     Dosage: 0.183 ?G, QH
     Route: 037
     Dates: start: 20160406
  4. PRIALT [Suspect]
     Active Substance: ZICONOTIDE ACETATE
     Dosage: 0.165 ?G, QH
     Route: 037
     Dates: start: 201612
  5. PRIALT [Suspect]
     Active Substance: ZICONOTIDE ACETATE
     Dosage: , QH
     Route: 037
     Dates: start: 201702
  6. BACLOFEN. [Suspect]
     Active Substance: BACLOFEN
     Indication: NEURALGIA
     Dosage: 580?G
     Route: 037
     Dates: start: 2004

REACTIONS (1)
  - Rhabdomyolysis [Recovered/Resolved]

NARRATIVE: CASE EVENT DATE: 201612
